FAERS Safety Report 9857296 (Version 1)
Quarter: 2014Q1

REPORT INFORMATION
  Report Type: Report from Study
  Country: US (occurrence: US)
  Receive Date: 20140130
  Receipt Date: 20140130
  Transmission Date: 20141002
  Serious: Yes (Other)
  Sender: FDA-Public Use
  Company Number: US-ABBVIE-14P-163-1192694-00

PATIENT
  Sex: Female
  Weight: 81.72 kg

DRUGS (14)
  1. HUMIRA [Suspect]
     Indication: RHEUMATOID ARTHRITIS
     Dates: start: 201105
  2. CORTISONE [Suspect]
     Indication: ARTHRALGIA
  3. MELOXICAM [Concomitant]
     Indication: RHEUMATOID ARTHRITIS
  4. HYDROCODONE [Concomitant]
     Indication: PAIN
  5. ONGLYZA [Concomitant]
     Indication: DIABETES MELLITUS
  6. NATEGLINIDE [Concomitant]
     Indication: DIABETES MELLITUS
  7. HYDROCODONE [Concomitant]
     Indication: PAIN
  8. LISINOPRIL [Concomitant]
     Indication: HYPERTENSION
  9. PANTOPRAZOLE [Concomitant]
     Indication: GASTRIC DISORDER
  10. PANTOPRAZOLE [Concomitant]
     Indication: PROPHYLAXIS
  11. PRESTIQ [Concomitant]
     Indication: DEPRESSION
  12. VITAMIN C [Concomitant]
     Indication: VITAMIN SUPPLEMENTATION
  13. FISH OIL [Concomitant]
     Indication: SUPPLEMENTATION THERAPY
  14. SOY LECITHIN [Concomitant]
     Indication: SUPPLEMENTATION THERAPY

REACTIONS (9)
  - Diabetes mellitus [Not Recovered/Not Resolved]
  - Injection site pain [Not Recovered/Not Resolved]
  - Rheumatoid arthritis [Not Recovered/Not Resolved]
  - Hypothyroidism [Not Recovered/Not Resolved]
  - Headache [Recovered/Resolved]
  - Arthralgia [Recovered/Resolved]
  - Malaise [Recovered/Resolved]
  - Tinnitus [Recovered/Resolved]
  - Device malfunction [Unknown]
